FAERS Safety Report 13412487 (Version 4)
Quarter: 2022Q3

REPORT INFORMATION
  Report Type: Spontaneous
  Country: US (occurrence: US)
  Receive Date: 20170406
  Receipt Date: 20220711
  Transmission Date: 20221027
  Serious: No
  Sender: FDA-Public Use
  Company Number: US-JNJFOC-20170309375

PATIENT
  Sex: Male

DRUGS (8)
  1. RISPERDAL [Suspect]
     Active Substance: RISPERIDONE
     Indication: Oppositional defiant disorder
     Dosage: VARIED DOSES OF 0.5 AND 1 MILLIGRAM
     Route: 048
     Dates: start: 20080212, end: 20101007
  2. RISPERDAL [Suspect]
     Active Substance: RISPERIDONE
     Indication: Obsessive-compulsive disorder
  3. RISPERDAL [Suspect]
     Active Substance: RISPERIDONE
     Indication: Affective disorder
  4. RISPERDAL [Suspect]
     Active Substance: RISPERIDONE
     Indication: Attention deficit hyperactivity disorder
  5. RISPERIDONE [Suspect]
     Active Substance: RISPERIDONE
     Indication: Oppositional defiant disorder
     Dosage: VARIED DOSES OF 1 MILLIGRAM AND 2 MILLIGRAM
     Route: 048
     Dates: start: 20120514, end: 20130909
  6. RISPERIDONE [Suspect]
     Active Substance: RISPERIDONE
     Indication: Obsessive-compulsive disorder
  7. RISPERIDONE [Suspect]
     Active Substance: RISPERIDONE
     Indication: Affective disorder
  8. RISPERIDONE [Suspect]
     Active Substance: RISPERIDONE
     Indication: Attention deficit hyperactivity disorder

REACTIONS (2)
  - Gynaecomastia [Unknown]
  - Emotional distress [Unknown]
